FAERS Safety Report 9405325 (Version 1)
Quarter: 2013Q3

REPORT INFORMATION
  Report Type: Report from Study
  Country: CA (occurrence: CA)
  Receive Date: 20130717
  Receipt Date: 20130717
  Transmission Date: 20140515
  Serious: Yes (Other)
  Sender: FDA-Public Use
  Company Number: CA-JNJFOC-20130709484

PATIENT
  Age: 40 Year
  Sex: Male
  Weight: 120 kg

DRUGS (7)
  1. REMICADE [Suspect]
     Indication: PSORIASIS
     Route: 042
     Dates: start: 200911
  2. JANUMET [Concomitant]
     Route: 065
  3. EFFEXOR [Concomitant]
     Route: 065
  4. LYRICA [Concomitant]
     Route: 065
  5. ACETYLSALICYLIC ACID [Concomitant]
     Route: 065
  6. LIPIDIL [Concomitant]
     Route: 065
  7. MORPHINE [Concomitant]
     Dosage: AS NEEDED (PRN)
     Route: 065

REACTIONS (1)
  - Hernia [Unknown]
